FAERS Safety Report 12396783 (Version 1)
Quarter: 2016Q2

REPORT INFORMATION
  Report Type: Spontaneous
  Country: US (occurrence: None)
  Receive Date: 20160523
  Receipt Date: 20160523
  Transmission Date: 20160815
  Serious: Yes (Hospitalization)
  Sender: FDA-Public Use
  Company Number: None

PATIENT
  Age: 60 Year
  Sex: Female
  Weight: 68.04 kg

DRUGS (3)
  1. PROBIOTIC [Concomitant]
     Active Substance: PROBIOTICS NOS
  2. TURMERIC-CURCUMIN [Concomitant]
  3. REMICADE [Suspect]
     Active Substance: INFLIXIMAB
     Indication: CROHN^S DISEASE
     Dosage: 2/19 + 3/3/16
     Dates: start: 20160219, end: 20160303

REACTIONS (4)
  - Vision blurred [None]
  - Serum sickness [None]
  - Groin pain [None]
  - Headache [None]

NARRATIVE: CASE EVENT DATE: 20160305
